FAERS Safety Report 20370445 (Version 1)
Quarter: 2022Q1

REPORT INFORMATION
  Report Type: Spontaneous
  Country: BR (occurrence: BR)
  Receive Date: 20220124
  Receipt Date: 20220124
  Transmission Date: 20220423
  Serious: Yes (Hospitalization, Other)
  Sender: FDA-Public Use
  Company Number: BR-TEVA-2022-BR-1999763

PATIENT
  Age: 74 Year
  Sex: Female
  Weight: 52 kg

DRUGS (4)
  1. OXALIPLATIN [Suspect]
     Active Substance: OXALIPLATIN
     Indication: Pancreatic carcinoma
     Dosage: 85 MG/M
  2. IRINOTECAN [Concomitant]
     Active Substance: IRINOTECAN
  3. LEUCOVORIN [Concomitant]
     Active Substance: LEUCOVORIN
  4. FLUOROURACIL [Concomitant]
     Active Substance: FLUOROURACIL

REACTIONS (6)
  - Febrile neutropenia [Recovered/Resolved]
  - Diarrhoea [Recovered/Resolved]
  - Gastroenteritis [Unknown]
  - Decreased appetite [Recovered/Resolved]
  - Dehydration [Recovered/Resolved]
  - Neutrophil count [Recovered/Resolved]

NARRATIVE: CASE EVENT DATE: 20211101
